FAERS Safety Report 6375743-3 (Version None)
Quarter: 2009Q3

REPORT INFORMATION
  Report Type: 
  Country: None (occurrence: None)
  Receive Date: 20090921
  Receipt Date: 20090910
  Transmission Date: 20100115
  Serious: Yes (Death, Hospitalization)
  Sender: FDA-Public Use
  Company Number: 2009AL000550

PATIENT
  Age: 83 Year
  Sex: Male

DRUGS (12)
  1. DIGOXIN [Suspect]
     Dosage: PO
     Route: 048
  2. AMBIEN [Concomitant]
  3. PRILOSEC [Concomitant]
  4. NAMENDA [Concomitant]
  5. LEXAPRO [Concomitant]
  6. ARICEPT [Concomitant]
  7. CEREFOLIN [Concomitant]
  8. ASPIRIN [Concomitant]
  9. TYLENOL (CAPLET) [Concomitant]
  10. QUININE SULFATE [Concomitant]
  11. FENTANYL TRANSDERMAL SYSTEM [Concomitant]
  12. LOVENOX [Concomitant]

REACTIONS (25)
  - ACUTE MYOCARDIAL INFARCTION [None]
  - ANHEDONIA [None]
  - ANXIETY [None]
  - ASTHENIA [None]
  - ATRIAL FIBRILLATION [None]
  - BLINDNESS [None]
  - BLOOD GLUCOSE INCREASED [None]
  - CARDIAC ARREST [None]
  - CARDIAC FAILURE CONGESTIVE [None]
  - CARDIOACTIVE DRUG LEVEL DECREASED [None]
  - DEAFNESS [None]
  - DEHYDRATION [None]
  - DIARRHOEA [None]
  - ECONOMIC PROBLEM [None]
  - HYPERTENSION [None]
  - HYPOPHOSPHATAEMIA [None]
  - HYPOTENSION [None]
  - INJURY [None]
  - PAIN [None]
  - RENAL FAILURE ACUTE [None]
  - RESPIRATORY FAILURE [None]
  - SEPSIS [None]
  - THERAPEUTIC AGENT TOXICITY [None]
  - UNEVALUABLE EVENT [None]
  - URINARY TRACT INFECTION [None]
